FAERS Safety Report 21196442 (Version 2)
Quarter: 2022Q3

REPORT INFORMATION
  Report Type: Other
  Country: US (occurrence: None)
  Receive Date: 20220810
  Receipt Date: 20220927
  Transmission Date: 20221026
  Serious: Yes (Other)
  Sender: FDA-Public Use
  Company Number: US-ROCHE-3158126

PATIENT
  Age: 46 Year
  Sex: Female
  Weight: 93.070 kg

DRUGS (4)
  1. OCREVUS [Suspect]
     Active Substance: OCRELIZUMAB
     Indication: Primary progressive multiple sclerosis
     Dosage: DATE OF TREATMENT FOR 1ST HALF INFUSION : 23/06/2021, DATE OF TREATMENT FOR 2ND HALF INFUSION : 07/0
     Route: 042
     Dates: start: 2021, end: 20220204
  2. KESIMPTA [Concomitant]
     Active Substance: OFATUMUMAB
     Dates: start: 202205
  3. NYSTATIN [Concomitant]
     Active Substance: NYSTATIN
     Dates: start: 20220903
  4. MEDROL [Concomitant]
     Active Substance: METHYLPREDNISOLONE
     Dates: start: 20220613

REACTIONS (5)
  - Neoplasm [Not Recovered/Not Resolved]
  - Oropharyngeal pain [Recovered/Resolved]
  - Haemorrhage [Recovered/Resolved]
  - Oral candidiasis [Recovered/Resolved]
  - Dysphonia [Not Recovered/Not Resolved]

NARRATIVE: CASE EVENT DATE: 20220828
